FAERS Safety Report 14212363 (Version 1)
Quarter: 2017Q4

REPORT INFORMATION
  Report Type: Spontaneous
  Country: US (occurrence: US)
  Receive Date: 20171122
  Receipt Date: 20171122
  Transmission Date: 20180321
  Serious: Yes (Other)
  Sender: FDA-Public Use
  Company Number: US-PFIZER INC-2017497648

PATIENT
  Age: 21 Year
  Sex: Female

DRUGS (11)
  1. LACTATED RINGERS SOLUTION [Concomitant]
     Active Substance: CALCIUM CHLORIDE\POTASSIUM CHLORIDE\SODIUM CHLORIDE\SODIUM LACTATE
     Dosage: UNK, (40 G/500 ML) (AT A RATE OF 25 ML/H)
  2. MAGNESIUM SULFATE. [Suspect]
     Active Substance: MAGNESIUM SULFATE
     Indication: PROPHYLAXIS
  3. FUROSEMIDE. [Concomitant]
     Active Substance: FUROSEMIDE
     Dosage: 20 MG, UNK (2 DOSES ON DAY 2)
     Route: 042
  4. FUROSEMIDE. [Concomitant]
     Active Substance: FUROSEMIDE
     Dosage: 20 MG, UNK (2 DOSES ON DAY 4)
     Route: 042
  5. MAGNESIUM SULFATE. [Suspect]
     Active Substance: MAGNESIUM SULFATE
     Indication: SEIZURE
     Dosage: UNK, (40 G/500 ML) (AT A RATE OF 25 ML/H)
  6. LABETALOL [Concomitant]
     Active Substance: LABETALOL\LABETALOL HYDROCHLORIDE
     Indication: PRE-ECLAMPSIA
     Dosage: 20 MG, UNK (ONE DOSE)
     Route: 042
  7. HYDRALAZINE [Concomitant]
     Active Substance: HYDRALAZINE HYDROCHLORIDE
     Indication: PRE-ECLAMPSIA
     Dosage: UNK (THREE DOSES OF TOTAL 25 MG)
     Route: 042
  8. FUROSEMIDE. [Concomitant]
     Active Substance: FUROSEMIDE
     Indication: PRE-ECLAMPSIA
     Dosage: 10 MG, UNK (2 DOSES ON DAY 1)
     Route: 042
  9. NICARDIPINE [Concomitant]
     Active Substance: NICARDIPINE
     Indication: PRE-ECLAMPSIA
  10. FUROSEMIDE. [Concomitant]
     Active Substance: FUROSEMIDE
     Dosage: 20 MG, UNK (2 DOSES ON DAY 3)
     Route: 042
  11. KAYEXALATE [Concomitant]
     Active Substance: SODIUM POLYSTYRENE SULFONATE
     Indication: HYPERKALAEMIA
     Dosage: 15 G, UNK

REACTIONS (4)
  - Hyperkalaemia [Recovered/Resolved]
  - Electrolyte imbalance [Recovered/Resolved]
  - Hypocalcaemia [Recovered/Resolved]
  - Hypermagnesaemia [Recovered/Resolved]
